FAERS Safety Report 13121436 (Version 3)
Quarter: 2017Q1

REPORT INFORMATION
  Report Type: Spontaneous
  Country: CA (occurrence: CA)
  Receive Date: 20170117
  Receipt Date: 20170224
  Transmission Date: 20170428
  Serious: Yes (Other)
  Sender: FDA-Public Use
  Company Number: CA-GLAXOSMITHKLINE-CA2016GSK169033

PATIENT
  Sex: Female

DRUGS (6)
  1. NUCALA [Suspect]
     Active Substance: MEPOLIZUMAB
     Indication: ASTHMA
     Dosage: 100 MG, Z
     Route: 042
     Dates: start: 20160919
  2. NUCALA [Suspect]
     Active Substance: MEPOLIZUMAB
     Dosage: 100 MG, Z
     Route: 042
  3. NUCALA [Suspect]
     Active Substance: MEPOLIZUMAB
     Dosage: 100 UNK, UNK
     Route: 042
     Dates: start: 20161214
  4. NUCALA [Suspect]
     Active Substance: MEPOLIZUMAB
     Dosage: 100 UNK, UNK
     Route: 042
     Dates: start: 20170110
  5. CORTISONE [Concomitant]
     Active Substance: CORTISONE\HYDROCORTISONE
  6. NUCALA [Suspect]
     Active Substance: MEPOLIZUMAB
     Dosage: 100 UNK, UNK
     Route: 042
     Dates: start: 20170220

REACTIONS (8)
  - Dyspnoea exertional [Unknown]
  - Nasopharyngitis [Unknown]
  - Oxygen saturation decreased [Unknown]
  - Limb discomfort [Unknown]
  - Lung infection [Unknown]
  - Pain in extremity [Unknown]
  - Malaise [Unknown]
  - Back pain [Recovered/Resolved]
